FAERS Safety Report 22195175 (Version 2)
Quarter: 2023Q2

REPORT INFORMATION
  Report Type: Spontaneous
  Country: BR (occurrence: BR)
  Receive Date: 20230411
  Receipt Date: 20230419
  Transmission Date: 20230721
  Serious: Yes (Life-Threatening, Other)
  Sender: FDA-Public Use
  Company Number: BR-BoehringerIngelheim-2023-BI-230510

PATIENT
  Age: 37 Year
  Sex: Female
  Weight: 80 kg

DRUGS (6)
  1. FENOTEROL HYDROBROMIDE\IPRATROPIUM BROMIDE [Suspect]
     Active Substance: FENOTEROL HYDROBROMIDE\IPRATROPIUM BROMIDE
     Indication: Asthma
     Dosage: ONLY WHEN SHE HAS A CRISIS, ONE PUFF, IN MORE INTENSE CRISES SHE USES TWO PUFFS.
     Route: 055
     Dates: start: 2021
  2. BEROTEC [Suspect]
     Active Substance: FENOTEROL HYDROBROMIDE
     Indication: Asthma
     Dosage: 4 DROPS, TOGETHER WITH THE MEDICATION IPRATROPIUM
     Route: 055
     Dates: start: 2008, end: 2019
  3. BEROTEC [Suspect]
     Active Substance: FENOTEROL HYDROBROMIDE
     Dosage: AEROSSOL
     Route: 055
  4. IPRATROPIUM BROMIDE [Suspect]
     Active Substance: IPRATROPIUM BROMIDE\IPRATROPIUM BROMIDE ANHYDROUS
     Indication: Asthma
     Dosage: IPRATROPIO - 10 DROPS
     Route: 055
     Dates: start: 2008, end: 2019
  5. UMECLIDINIUM BROMIDE\VILANTEROL TRIFENATATE [Concomitant]
     Active Substance: UMECLIDINIUM BROMIDE\VILANTEROL TRIFENATATE
     Indication: Pneumonitis
     Route: 055
     Dates: start: 2021
  6. Clenil HF 200 [Concomitant]
     Indication: Asthmatic crisis
     Dates: start: 2021

REACTIONS (16)
  - Near death experience [Unknown]
  - Asthmatic crisis [Unknown]
  - Cardiac arrest [Unknown]
  - Dyspnoea [Unknown]
  - Pneumonitis [Not Recovered/Not Resolved]
  - Nasopharyngitis [Not Recovered/Not Resolved]
  - Influenza [Not Recovered/Not Resolved]
  - Cholelithiasis [Unknown]
  - Fatigue [Unknown]
  - Dyspnoea [Unknown]
  - Extra dose administered [Unknown]
  - Drug ineffective [Unknown]
  - Drug ineffective [Unknown]
  - Prescription drug used without a prescription [Unknown]
  - Hypothyroidism [Unknown]
  - Glucose tolerance impaired [Recovered/Resolved]

NARRATIVE: CASE EVENT DATE: 20170101
